FAERS Safety Report 11216796 (Version 1)
Quarter: 2015Q2

REPORT INFORMATION
  Report Type: Spontaneous
  Country: GB (occurrence: GB)
  Receive Date: 20150624
  Receipt Date: 20150624
  Transmission Date: 20150821
  Serious: Yes (Hospitalization)
  Sender: FDA-Public Use
  Company Number: GB-TEVA-571890ACC

PATIENT
  Age: 54 Year
  Sex: Female
  Weight: 86 kg

DRUGS (29)
  1. SYMBICORT [Concomitant]
     Active Substance: BUDESONIDE\FORMOTEROL FUMARATE DIHYDRATE
     Indication: ASTHMA
     Dosage: 8 DOSAGE FORMS DAILY; AND IN THE AFTERNOON IF NEEDED
     Dates: start: 20140813
  2. ESOMEPRAZOLE [Concomitant]
     Active Substance: ESOMEPRAZOLE
     Dosage: 40 MILLIGRAM DAILY; GASTRO-RESISTANT TABLET
     Dates: start: 20140813
  3. FOLIC ACID. [Concomitant]
     Active Substance: FOLIC ACID
     Dosage: 5 MILLIGRAM DAILY;
     Dates: start: 20140813
  4. ARTIFICIAL SALIVA [Concomitant]
     Indication: DRY MOUTH
     Dosage: USE AS DIRECTED.
     Dates: start: 20140813
  5. PREDNISOLONE. [Interacting]
     Active Substance: PREDNISOLONE
     Indication: ASTHMA
     Dosage: ORIGINAL DOSE PRESCRIBED WAS REDUCED.
     Dates: start: 201410
  6. ALENDRONIC ACID [Concomitant]
     Active Substance: ALENDRONIC ACID
     Dates: start: 20150528
  7. MEPTAZINOL [Concomitant]
     Dosage: 800 MILLIGRAM DAILY;
     Dates: start: 20150528
  8. PREMARIN [Concomitant]
     Active Substance: ESTROGENS, CONJUGATED
     Indication: HORMONE REPLACEMENT THERAPY
     Dosage: .625 MILLIGRAM DAILY;
     Dates: start: 20140813
  9. NAVISPARE [Concomitant]
     Indication: HYPERALDOSTERONISM
     Dosage: 1 DOSAGE FORMS DAILY;
     Dates: start: 20140813
  10. SANDO-K [Concomitant]
     Active Substance: POTASSIUM BICARBONATE\POTASSIUM CHLORIDE
     Dosage: 2 DOSAGE FORMS DAILY; EFFERVESCENT TABLET
     Dates: start: 20150528
  11. ONDANSETRON [Concomitant]
     Active Substance: ONDANSETRON
     Dosage: 12 MILLIGRAM DAILY;
     Dates: start: 20140818
  12. SODIUM CHLORIDE. [Concomitant]
     Active Substance: SODIUM CHLORIDE
     Dosage: 4 DOSAGE FORMS DAILY;
     Route: 055
     Dates: start: 20140813
  13. TOPIRAMATE. [Concomitant]
     Active Substance: TOPIRAMATE
     Dosage: 50 MILLIGRAM DAILY;
     Dates: start: 20150528
  14. LORATADINE. [Concomitant]
     Active Substance: LORATADINE
     Indication: SEASONAL ALLERGY
     Dosage: WHEN REQUIRED
     Dates: start: 20140813
  15. VENTOLIN [Concomitant]
     Active Substance: ALBUTEROL SULFATE
     Indication: ASTHMA
     Dosage: 2 PUFFS WHEN REQUIRED
     Route: 055
     Dates: start: 20140813
  16. ASPIRIN. [Concomitant]
     Active Substance: ASPIRIN
     Dosage: 75 MILLIGRAM DAILY;
     Dates: start: 20150528
  17. TIOTROPIUM BROMIDE [Concomitant]
     Active Substance: TIOTROPIUM BROMIDE
     Indication: ASTHMA
     Dosage: 18 MICROGRAM DAILY;
     Route: 055
     Dates: start: 20140813
  18. HYDROXOCOBALAMIN [Concomitant]
     Active Substance: HYDROXOCOBALAMIN
     Dates: start: 20140813
  19. CLARITHROMYCIN. [Suspect]
     Active Substance: CLARITHROMYCIN
     Indication: ASTHMA
     Dosage: 250 MILLIGRAM DAILY; HALVED ON 16TH APRIL 2015.
     Route: 048
     Dates: start: 20150416
  20. CLARITHROMYCIN. [Interacting]
     Active Substance: CLARITHROMYCIN
     Indication: ASTHMA
     Dosage: 500 MILLIGRAM DAILY;
     Route: 048
     Dates: start: 201410, end: 20150416
  21. SENNA [Concomitant]
     Active Substance: SENNA LEAF\SENNOSIDES\SENNOSIDES A AND B
     Dosage: 1 OR 2 AT NIGHT WHEN REQUIRED.
     Dates: start: 20140813
  22. HYDROXYCHLOROQUINE [Concomitant]
     Active Substance: HYDROXYCHLOROQUINE
     Indication: ARTHRITIS
     Dosage: 400 MILLIGRAM DAILY;
     Dates: start: 20140813
  23. HYPROMELLOSE [Concomitant]
     Active Substance: HYPROMELLOSES
     Indication: DRY EYE
     Dosage: AS NEEDED TO EACH EYE
     Dates: start: 20140813
  24. BECONASE AQ [Concomitant]
     Active Substance: BECLOMETHASONE DIPROPIONATE MONOHYDRATE
     Indication: SEASONAL ALLERGY
     Dosage: 4 DOSAGE FORMS DAILY; TO EACH NOSTRIL.
     Dates: start: 20140813
  25. ADCAL-D3 [Concomitant]
     Active Substance: CALCIUM CARBONATE\CHOLECALCIFEROL
     Dosage: 2 DOSAGE FORMS DAILY;
     Dates: start: 20150528
  26. VENTOLIN [Concomitant]
     Active Substance: ALBUTEROL SULFATE
     Indication: ASTHMA
     Dosage: INHALE 1 DOSE 3-4 TIMES A DAY AS REQURIED
     Dates: start: 20140813
  27. SERTRALINE [Concomitant]
     Active Substance: SERTRALINE HYDROCHLORIDE
     Indication: DEPRESSION
     Dosage: 50 MILLIGRAM DAILY;
     Dates: start: 20140813
  28. PARACETAMOL [Concomitant]
     Active Substance: ACETAMINOPHEN
     Indication: PAIN
     Dosage: TAKE ONE OR TWO TABLETS FOUR TIMES A DAY (NOT EVERYDAY) WHEN REQUIRED
     Dates: start: 20140813
  29. MACROGOL [Concomitant]
     Active Substance: POLYETHYLENE GLYCOLS
     Dosage: 2 DOSAGE FORMS DAILY; ORAL POWDER
     Dates: start: 20140115

REACTIONS (12)
  - Asthenia [Recovered/Resolved]
  - Swelling face [Recovered/Resolved]
  - Abdominal distension [Recovered/Resolved]
  - Eye swelling [Recovered/Resolved]
  - Drug interaction [Unknown]
  - Status asthmaticus [Unknown]
  - Acidosis [Recovered/Resolved]
  - Diplopia [Not Recovered/Not Resolved]
  - Skin hypertrophy [Recovered/Resolved]
  - Headache [Not Recovered/Not Resolved]
  - Temporal arteritis [Unknown]
  - Transient ischaemic attack [Unknown]
